FAERS Safety Report 9220488 (Version 1)
Quarter: 2013Q2

REPORT INFORMATION
  Report Type: Spontaneous
  Country: US (occurrence: US)
  Receive Date: 20130409
  Receipt Date: 20130409
  Transmission Date: 20140414
  Serious: Yes (Other)
  Sender: FDA-Public Use
  Company Number: CHPA2013US006112

PATIENT
  Age: 60 Year
  Sex: Female

DRUGS (2)
  1. CVS [Suspect]
     Indication: SMOKING CESSATION THERAPY
     Dosage: 21 MG, QD
     Route: 062
     Dates: start: 20130308
  2. PREDNISONE [Concomitant]
     Indication: DYSPNOEA

REACTIONS (3)
  - Dyspnoea [Not Recovered/Not Resolved]
  - Overdose [Unknown]
  - Treatment noncompliance [Unknown]
